FAERS Safety Report 6164019-5 (Version None)
Quarter: 2009Q2

REPORT INFORMATION
  Report Type: 
  Country: None (occurrence: None)
  Receive Date: 20090422
  Receipt Date: 20090414
  Transmission Date: 20091009
  Serious: Yes (Hospitalization)
  Sender: FDA-Public Use
  Company Number: NL-SANOFI-SYNTHELABO-F01200900361

PATIENT
  Sex: Female

DRUGS (4)
  1. MARZINE [Concomitant]
     Dosage: UNK
  2. AVASTIN [Suspect]
     Dosage: DAY 1, Q3W MG
     Route: 041
     Dates: start: 20070516
  3. XELODA [Suspect]
     Dosage: BID, DAY 1-14, Q3W MG
     Route: 048
     Dates: start: 20070516
  4. ELOXATIN [Suspect]
     Indication: COLORECTAL CANCER
     Dosage: DAY 1, Q3W MG
     Route: 041
     Dates: start: 20070516, end: 20090317

REACTIONS (1)
  - SCIATICA [None]
